FAERS Safety Report 24310989 (Version 1)
Quarter: 2024Q3

REPORT INFORMATION
  Report Type: Report from Study
  Country: KR (occurrence: KR)
  Receive Date: 20240912
  Receipt Date: 20240912
  Transmission Date: 20241017
  Serious: Yes (Death, Hospitalization, Other)
  Sender: RANBAXY
  Company Number: KR-SUN PHARMACEUTICAL INDUSTRIES LTD-2024RR-467217

PATIENT
  Age: 70 Year
  Sex: Female
  Weight: 50.25 kg

DRUGS (12)
  1. CAPECITABINE [Suspect]
     Active Substance: CAPECITABINE
     Indication: Adenocarcinoma gastric
     Dosage: 1000 MILLIGRAM/SQ. METER, BID
     Route: 048
     Dates: start: 20240724, end: 20240803
  2. OXALIPLATIN [Suspect]
     Active Substance: OXALIPLATIN
     Indication: Adenocarcinoma gastric
     Dosage: 130 MILLIGRAM/SQ. METER, Q3W
     Route: 040
     Dates: start: 20240724
  3. ZANIDATAMAB [Suspect]
     Active Substance: ZANIDATAMAB
     Indication: Adenocarcinoma gastric
     Dosage: 1800 MILLIGRAM, Q3W
     Route: 040
     Dates: start: 20240724
  4. ZANIDATAMAB [Suspect]
     Active Substance: ZANIDATAMAB
     Dosage: 1800 MILLIGRAM, Q3W
     Route: 040
     Dates: start: 20240724
  5. AMLODIPINE BESILATE, TELMISARTAN [Concomitant]
     Indication: Product used for unknown indication
     Dosage: UNK
     Route: 065
     Dates: start: 20240717, end: 20240731
  6. URSODIOL [Concomitant]
     Active Substance: URSODIOL
     Indication: Product used for unknown indication
     Dosage: UNK
     Route: 040
     Dates: start: 20240525
  7. DIETARY SUPPLEMENT\HERBALS\MILK THISTLE [Concomitant]
     Active Substance: MILK THISTLE
     Indication: Product used for unknown indication
     Dosage: UNK
     Route: 065
     Dates: start: 20240712
  8. MEDILAC DS [Concomitant]
     Indication: Product used for unknown indication
     Dosage: UNK
     Route: 065
     Dates: start: 20240712
  9. APREPITANT [Concomitant]
     Active Substance: APREPITANT
     Indication: Product used for unknown indication
     Dosage: UNK
     Route: 040
     Dates: start: 20240724
  10. PALSERON [Concomitant]
     Indication: Product used for unknown indication
     Dosage: UNK
     Route: 065
     Dates: start: 20240724
  11. LOPERAMIDE [Concomitant]
     Active Substance: LOPERAMIDE
     Indication: Product used for unknown indication
     Dosage: UNK
     Route: 065
     Dates: start: 20240724, end: 20240804
  12. CHLORPHENIRAMINE MALEATE [Concomitant]
     Active Substance: CHLORPHENIRAMINE MALEATE
     Indication: Product used for unknown indication
     Dosage: UNK
     Route: 065
     Dates: start: 20240724

REACTIONS (2)
  - Sepsis [Fatal]
  - Diarrhoea [Fatal]

NARRATIVE: CASE EVENT DATE: 20240801
